FAERS Safety Report 13534762 (Version 4)
Quarter: 2021Q1

REPORT INFORMATION
  Report Type: Spontaneous
  Country: US (occurrence: US)
  Receive Date: 20170511
  Receipt Date: 20210219
  Transmission Date: 20210419
  Serious: Yes (Disabling, Other)
  Sender: FDA-Public Use
  Company Number: US-PFIZER INC-2016378242

PATIENT
  Age: 53 Year
  Sex: Female
  Weight: 58.96 kg

DRUGS (21)
  1. FLUTICASONE. [Concomitant]
     Active Substance: FLUTICASONE
     Dosage: 2X/DAY (1 SPRAY)
     Route: 045
  2. TRAMADOL. [Concomitant]
     Active Substance: TRAMADOL
     Indication: PAIN
     Dosage: 150 MG 1?2 Q 6 HRS PRN
     Route: 048
  3. DICLOFENAC SODIUM. [Concomitant]
     Active Substance: DICLOFENAC SODIUM
     Dosage: 75 MG, BID
     Route: 048
     Dates: start: 20160120
  4. MELATONIN [Concomitant]
     Active Substance: MELATONIN
     Dosage: 10 MG, 1X/DAY (AT BEDTIME)
     Route: 048
  5. VENTOLIN HFA [Concomitant]
     Active Substance: ALBUTEROL SULFATE
     Dosage: UNK
     Dates: start: 2017
  6. CYCLOBENZAPRINE. [Concomitant]
     Active Substance: CYCLOBENZAPRINE
     Dosage: 10 MG, BID
     Dates: start: 2004, end: 2016
  7. DICLOFENAC SODIUM. [Concomitant]
     Active Substance: DICLOFENAC SODIUM
     Dosage: UNK
     Dates: start: 2015
  8. IRON [Concomitant]
     Active Substance: IRON
     Dosage: 325 MG (65 MG IRON), 2X/WEEK
     Route: 048
     Dates: start: 20160728
  9. APAP W/HYDROCODONE [Concomitant]
     Active Substance: ACETAMINOPHEN\HYDROCODONE
     Dosage: [HYDROCODONE: 10 MG] /[PARACETAMOL: 325 MG] 1 DF, 2X/DAY
     Dates: start: 2015
  10. SPIRIVA [Concomitant]
     Active Substance: TIOTROPIUM BROMIDE MONOHYDRATE
     Dosage: 1X/DAY (QD)
     Route: 055
     Dates: start: 2014
  11. VENTOLIN HFA [Concomitant]
     Active Substance: ALBUTEROL SULFATE
     Dosage: 2 DF, AS NEEDED (2 PUFFS BY MOUTH EVERY 6 HOURS AS NEEDED)
     Route: 055
     Dates: start: 20160707
  12. EXCEDRIN [Concomitant]
     Active Substance: ACETAMINOPHEN\ASPIRIN\CAFFEINE
     Indication: MIGRAINE
     Dosage: UNK, AS NEEDED [ACETYLSALICYLIC ACID 250MG, PARACETAMOL 250MG, CAFFEINE 65MG; TABLET 1?2 Q 6HRS PRN]
     Route: 048
     Dates: start: 1970
  13. VITAMIN C [Concomitant]
     Active Substance: ASCORBIC ACID
     Dosage: UNK
  14. LYRICA [Suspect]
     Active Substance: PREGABALIN
     Indication: FIBROMYALGIA
     Dosage: 200 MG, 3X/DAY
     Route: 048
     Dates: start: 2000
  15. LYRICA [Suspect]
     Active Substance: PREGABALIN
     Indication: PAIN
  16. IRON [Concomitant]
     Active Substance: IRON
     Dosage: 325 MG, QD
     Route: 048
  17. PROAIR HFA [Concomitant]
     Active Substance: ALBUTEROL SULFATE
     Dosage: AS NEEDED (Q 6 PRN)
     Route: 055
     Dates: start: 1995
  18. TRAMADOL. [Concomitant]
     Active Substance: TRAMADOL
     Dosage: 50 MG, AS NEEDED (EVERY 6 HOURS)
     Route: 048
  19. TRAMADOL. [Concomitant]
     Active Substance: TRAMADOL
     Dosage: UNK
     Dates: start: 2015
  20. PANTOPRAZOLE [Concomitant]
     Active Substance: PANTOPRAZOLE
     Dosage: 40 MG, 1X/DAY
     Route: 048
     Dates: start: 20160602
  21. SIMVASTATIN. [Concomitant]
     Active Substance: SIMVASTATIN
     Dosage: 20 MG, 1X/DAY (IN THE EVENING)
     Route: 048
     Dates: start: 2016

REACTIONS (8)
  - Drug dependence [Not Recovered/Not Resolved]
  - Pain [Not Recovered/Not Resolved]
  - Arthritis [Not Recovered/Not Resolved]
  - Paralysis [Not Recovered/Not Resolved]
  - Product dose omission issue [Not Recovered/Not Resolved]
  - Headache [Not Recovered/Not Resolved]
  - Fatigue [Not Recovered/Not Resolved]
  - Memory impairment [Not Recovered/Not Resolved]
